FAERS Safety Report 10038166 (Version 2)
Quarter: 2014Q2

REPORT INFORMATION
  Report Type: Spontaneous
  Country: US (occurrence: US)
  Receive Date: 20140326
  Receipt Date: 20140501
  Transmission Date: 20141212
  Serious: No
  Sender: FDA-Public Use
  Company Number: US-PFIZER INC-2014083319

PATIENT
  Sex: Female

DRUGS (3)
  1. DILANTIN-125 [Suspect]
     Dosage: 300 MG, 1X/DAY (AT NIGHT)
  2. UNISOM [Concomitant]
     Dosage: UNK
  3. SINGULAIR [Concomitant]
     Dosage: UNK

REACTIONS (1)
  - Drug level increased [Unknown]
